FAERS Safety Report 8897572 (Version 1)
Quarter: 2012Q4

REPORT INFORMATION
  Report Type: 
  Country: US (occurrence: US)
  Receive Date: 20121108
  Receipt Date: 20121108
  Transmission Date: 20130627
  Serious: No
  Sender: FDA-Public Use
  Company Number: US-AMGEN-USASP2012038684

PATIENT
  Sex: Male
  Weight: 117.91 kg

DRUGS (5)
  1. ENBREL [Suspect]
     Indication: PRODUCT USED FOR UNKNOWN INDICATION
     Dosage: 50 mg/ml, qwk
     Route: 058
  2. CELEBREX [Concomitant]
     Dosage: 50 mg, UNK
  3. ULTRAM [Concomitant]
     Dosage: 50 mg, UNK
  4. ATENOLOL [Concomitant]
     Dosage: 25 mg, UNK
  5. SIMVASTATIN [Concomitant]
     Dosage: 5 mg, UNK

REACTIONS (2)
  - Injection site erythema [Recovered/Resolved]
  - Injection site swelling [Recovered/Resolved]
